FAERS Safety Report 6806981-0 (Version None)
Quarter: 2010Q2

REPORT INFORMATION
  Report Type: 
  Country: None (occurrence: None)
  Receive Date: 20100629
  Receipt Date: 20080616
  Transmission Date: 20101027
  Serious: No
  Sender: FDA-Public Use
  Company Number: US-PFIZER INC-2008050387

PATIENT
  Age: 34 Year
  Sex: Female

DRUGS (3)
  1. XANAX [Suspect]
     Indication: ANXIETY
     Route: 048
     Dates: start: 20020101
  2. CILEST [Suspect]
     Indication: MENSTRUAL CYCLE MANAGEMENT
     Dates: start: 20080501
  3. PAMELOR [Suspect]
     Indication: DEPRESSION
     Route: 048
     Dates: start: 20020101

REACTIONS (1)
  - METRORRHAGIA [None]
